FAERS Safety Report 7650271-3 (Version None)
Quarter: 2011Q3

REPORT INFORMATION
  Report Type: 
  Country: None (occurrence: None)
  Receive Date: 20110727
  Receipt Date: 20110713
  Transmission Date: 20111222
  Serious: Yes (Other)
  Sender: FDA-Public Use
  Company Number: NGX_00416_2011

PATIENT
  Sex: Female
  Weight: 97.5234 kg

DRUGS (3)
  1. GABAPENTIN [Concomitant]
  2. QUTENZA [Suspect]
     Indication: PRODUCT USED FOR UNKNOWN INDICATION
     Dosage: (DF [PATCH] TOPICAL)
     Route: 061
     Dates: start: 20110512, end: 20110512
  3. PERCOCET [Concomitant]

REACTIONS (4)
  - APPLICATION SITE IRRITATION [None]
  - APPLICATION SITE ERYTHEMA [None]
  - BLOOD PRESSURE INCREASED [None]
  - APPLICATION SITE VESICLES [None]
